FAERS Safety Report 8241484-0 (Version None)
Quarter: 2012Q1

REPORT INFORMATION
  Report Type: 
  Country: None (occurrence: None)
  Receive Date: 20120328
  Receipt Date: 20120319
  Transmission Date: 20120608
  Serious: Yes (Death, Other)
  Sender: FDA-Public Use
  Company Number: DE-ROCHE-1050508

PATIENT

DRUGS (1)
  1. MABTHERA [Suspect]
     Indication: WEGENER'S GRANULOMATOSIS
     Route: 042

REACTIONS (10)
  - INFECTION [None]
  - CYTOMEGALOVIRUS INFECTION [None]
  - PNEUMONIA [None]
  - UPPER RESPIRATORY TRACT INFECTION [None]
  - INFUSION RELATED REACTION [None]
  - PNEUMOCYSTIS JIROVECI PNEUMONIA [None]
  - URINARY TRACT INFECTION [None]
  - DACRYOCYSTITIS [None]
  - ENDOCARDITIS [None]
  - HERPES ZOSTER [None]
